FAERS Safety Report 5222741-9 (Version None)
Quarter: 2007Q1

REPORT INFORMATION
  Report Type: 
  Country: None (occurrence: None)
  Receive Date: 20070124
  Receipt Date: 20070112
  Transmission Date: 20070707
  Serious: Yes (Hospitalization)
  Sender: FDA-Public Use
  Company Number: 2007-00095

PATIENT
  Age: 47 Year
  Sex: Female

DRUGS (5)
  1. VELCADE [Suspect]
     Indication: MULTIPLE MYELOMA
     Dosage: UNKNOWN
  2. DEXAMETHASONE [Suspect]
     Indication: MULTIPLE MYELOMA
     Dosage: UNKNOWN
  3. CYCLOPHOSPHAMIDE [Suspect]
     Indication: MULTIPLE MYELOMA
     Dosage: UNKNOWN
  4. ETOPOSIDE [Suspect]
     Indication: MULTIPLE MYELOMA
     Dosage: UNKNOWN
  5. CISPLATIN [Suspect]
     Indication: MULTIPLE MYELOMA
     Dosage: UNKNOWN

REACTIONS (6)
  - COUGH [None]
  - DYSPNOEA [None]
  - INFLAMMATION [None]
  - LUNG DISORDER [None]
  - PYREXIA [None]
  - SEPSIS [None]
